FAERS Safety Report 9359956 (Version 1)
Quarter: 2013Q2

REPORT INFORMATION
  Report Type: Spontaneous
  Country: US (occurrence: US)
  Receive Date: 20130621
  Receipt Date: 20130621
  Transmission Date: 20140414
  Serious: No
  Sender: FDA-Public Use
  Company Number: US-US-EMD SERONO, INC.-7133384

PATIENT
  Sex: Female

DRUGS (6)
  1. REBIF [Suspect]
     Indication: MULTIPLE SCLEROSIS
  2. COPAXONE [Concomitant]
     Indication: PRODUCT USED FOR UNKNOWN INDICATION
  3. GILENYA [Concomitant]
     Indication: PRODUCT USED FOR UNKNOWN INDICATION
     Dates: start: 201202
  4. LIPITOR [Concomitant]
     Indication: BLOOD CHOLESTEROL
  5. CYTOXAN [Concomitant]
     Indication: MULTIPLE SCLEROSIS
  6. NOVANTRONE [Concomitant]
     Indication: MULTIPLE SCLEROSIS

REACTIONS (1)
  - Hepatic enzyme increased [Recovered/Resolved]
